FAERS Safety Report 12594131 (Version 1)
Quarter: 2016Q3

REPORT INFORMATION
  Report Type: Spontaneous
  Country: US (occurrence: US)
  Receive Date: 20160726
  Receipt Date: 20160726
  Transmission Date: 20161109
  Serious: Yes (Other)
  Sender: FDA-Public Use
  Company Number: US-AUROBINDO-AUR-APL-2016-09455

PATIENT

DRUGS (2)
  1. HYDROCHLOROTHIAZIDE. [Suspect]
     Active Substance: HYDROCHLOROTHIAZIDE
     Indication: HYPERTENSION
     Route: 065
  2. TUMS [Suspect]
     Active Substance: CALCIUM CARBONATE
     Indication: PAIN
     Route: 048

REACTIONS (10)
  - Bundle branch block left [Recovered/Resolved]
  - Troponin T increased [Recovered/Resolved]
  - Electrocardiogram ST segment elevation [Recovered/Resolved]
  - Nausea [Recovered/Resolved]
  - Hypercalcaemia [Recovered/Resolved]
  - Abdominal pain upper [Recovered/Resolved]
  - Milk-alkali syndrome [Recovered/Resolved]
  - Chronic kidney disease [Recovered/Resolved]
  - Vomiting [Recovered/Resolved]
  - Overdose [Recovered/Resolved]
